FAERS Safety Report 19583604 (Version 1)
Quarter: 2021Q3

REPORT INFORMATION
  Report Type: Spontaneous
  Country: US (occurrence: US)
  Receive Date: 20210720
  Receipt Date: 20210720
  Transmission Date: 20211014
  Serious: Yes (Life-Threatening, Disabling, Other)
  Sender: FDA-Public Use
  Company Number: None

PATIENT
  Age: 68 Year
  Sex: Male
  Weight: 78.75 kg

DRUGS (7)
  1. COLOSTRUM HCL 500 MG [DIETARY SUPPLEMENT] [Suspect]
     Active Substance: DIETARY SUPPLEMENT
     Indication: DIABETES MELLITUS
     Dosage: ??          QUANTITY:1 TABLET(S);?
     Route: 048
     Dates: start: 20210324, end: 20210714
  2. LIPITOR [Concomitant]
     Active Substance: ATORVASTATIN CALCIUM
  3. GLIMEPIRIDE 1MG [Suspect]
     Active Substance: GLIMEPIRIDE
     Indication: DIABETES MELLITUS
     Dosage: ?          QUANTITY:1 TABLET(S);?
     Dates: start: 20210324, end: 20210714
  4. ASPIRIN. [Suspect]
     Active Substance: ASPIRIN
  5. VITAMIN B12 [Concomitant]
     Active Substance: CYANOCOBALAMIN
  6. COLOSTRUM HCL 500 MG [DIETARY SUPPLEMENT] [Suspect]
     Active Substance: DIETARY SUPPLEMENT
     Indication: BLOOD CHOLESTEROL
     Dosage: ??          QUANTITY:1 TABLET(S);?
     Route: 048
     Dates: start: 20210324, end: 20210714
  7. METFORMIN [Concomitant]
     Active Substance: METFORMIN HYDROCHLORIDE

REACTIONS (9)
  - Mental disorder [None]
  - Wound [None]
  - Balance disorder [None]
  - Nervousness [None]
  - Gastrointestinal disorder [None]
  - Dyspnoea [None]
  - General physical health deterioration [None]
  - Fall [None]
  - Suspected product quality issue [None]

NARRATIVE: CASE EVENT DATE: 20210625
